FAERS Safety Report 5097404-3 (Version None)
Quarter: 2006Q3

REPORT INFORMATION
  Report Type: 
  Country: None (occurrence: None)
  Receive Date: 20060906
  Receipt Date: 20060904
  Transmission Date: 20061208
  Serious: Yes (Life-Threatening, Hospitalization, Disabling)
  Sender: FDA-Public Use
  Company Number: 2006AC01612

PATIENT
  Age: 15415 Day
  Sex: Male

DRUGS (2)
  1. DIPRIVAN [Suspect]
     Indication: ANAESTHESIA
     Route: 042
     Dates: start: 20041014, end: 20041014
  2. VALIUM [Concomitant]

REACTIONS (1)
  - CARDIAC FAILURE [None]
